FAERS Safety Report 18070216 (Version 1)
Quarter: 2020Q3

REPORT INFORMATION
  Report Type: Report from Study
  Country: US (occurrence: US)
  Receive Date: 20200727
  Receipt Date: 20200727
  Transmission Date: 20201103
  Serious: Yes (Hospitalization)
  Sender: FDA-Public Use
  Company Number: US-TAIHO ONCOLOGY  INC-EU-2020-02621

PATIENT
  Sex: Female
  Weight: 48.58 kg

DRUGS (3)
  1. TYLENOL [Concomitant]
     Active Substance: ACETAMINOPHEN
  2. ELIQUIS [Concomitant]
     Active Substance: APIXABAN
  3. LONSURF [Suspect]
     Active Substance: TIPIRACIL HYDROCHLORIDE\TRIFLURIDINE
     Indication: RECTAL CANCER
     Dosage: CYCLE UNKNOWN
     Route: 048
     Dates: start: 20200420

REACTIONS (3)
  - Staphylococcal infection [Unknown]
  - Rectal haemorrhage [Unknown]
  - Cytopenia [Unknown]
